FAERS Safety Report 4486629-3 (Version None)
Quarter: 2004Q4

REPORT INFORMATION
  Report Type: 
  Country: None (occurrence: None)
  Receive Date: 20041027
  Receipt Date: 20041021
  Transmission Date: 20050328
  Serious: Yes (Hospitalization)
  Sender: FDA-Public Use
  Company Number: PHRM2004FR03174

PATIENT
  Age: 79 Year
  Sex: Female

DRUGS (12)
  1. EXELON [Suspect]
     Dosage: 1 DF, BID
     Route: 048
     Dates: start: 20040825, end: 20040901
  2. PYOSTACINE [Suspect]
     Indication: ERYSIPELAS
     Route: 048
     Dates: start: 20040831, end: 20040901
  3. TAREG [Concomitant]
     Dosage: 80 MG, QD
     Route: 048
  4. STABLON [Concomitant]
     Dosage: 12.5 MG, BID
     Route: 048
  5. BROMAZEPAM [Concomitant]
     Dosage: 3 MG, BID
     Route: 048
  6. SERESTA [Concomitant]
     Dosage: 50 MG, QD
     Route: 048
  7. FENOFIBRATE [Concomitant]
     Dosage: 160 MG, QD
     Route: 048
  8. VIOXX [Concomitant]
     Dosage: 25 MG, QD
     Route: 048
  9. MOPRAL [Concomitant]
     Dosage: 20 MG, QD
     Route: 048
  10. ZYRTEC [Concomitant]
     Dosage: 10 MG, QD
     Route: 048
  11. MOVICOL [Concomitant]
     Dosage: 1 DF, QD
     Route: 048
  12. GELOX [Concomitant]
     Route: 048

REACTIONS (4)
  - ERYSIPELAS [None]
  - ERYTHEMA [None]
  - PRURITUS [None]
  - SKIN DESQUAMATION [None]
